FAERS Safety Report 6555091-9 (Version None)
Quarter: 2010Q1

REPORT INFORMATION
  Report Type: 
  Country: None (occurrence: None)
  Receive Date: 20100126
  Receipt Date: 20100126
  Transmission Date: 20100710
  Serious: Yes (Other)
  Sender: FDA-Public Use
  Company Number: None

PATIENT
  Sex: Female

DRUGS (2)
  1. SERTRALINE HCL [Suspect]
     Indication: BIPOLAR DISORDER
     Dosage: 100 MG QD ORAL
     Route: 048
     Dates: start: 20070601
  2. SERTRALINE HCL [Suspect]
     Indication: DEPRESSION
     Dosage: 100 MG QD ORAL
     Route: 048
     Dates: start: 20070601

REACTIONS (2)
  - PRODUCT SUBSTITUTION ISSUE [None]
  - PSYCHIATRIC DECOMPENSATION [None]
